FAERS Safety Report 8925224 (Version 1)
Quarter: 2012Q4

REPORT INFORMATION
  Report Type: 
  Country: US (occurrence: US)
  Receive Date: 20121126
  Receipt Date: 20121126
  Transmission Date: 20130627
  Serious: Yes (Hospitalization)
  Sender: FDA-Public Use
  Company Number: US-BAYER-2012-120769

PATIENT
  Age: 31 Year
  Sex: Female
  Weight: 97.51 kg

DRUGS (1)
  1. YAZ [Suspect]
     Indication: MENSTRUAL MIGRAINE

REACTIONS (3)
  - Pulmonary embolism [None]
  - Deep vein thrombosis [None]
  - Off label use [None]
